FAERS Safety Report 19067664 (Version 2)
Quarter: 2021Q2

REPORT INFORMATION
  Report Type: Report from Study
  Country: NL (occurrence: NL)
  Receive Date: 20210329
  Receipt Date: 20210409
  Transmission Date: 20210717
  Serious: Yes (Other)
  Sender: FDA-Public Use
  Company Number: NL-BIOGEN-2021BI00985586

PATIENT
  Age: 33 Year
  Sex: Female

DRUGS (4)
  1. TECFIDERA [Suspect]
     Active Substance: DIMETHYL FUMARATE
     Route: 065
     Dates: start: 2016, end: 202009
  2. TECFIDERA [Suspect]
     Active Substance: DIMETHYL FUMARATE
     Indication: MULTIPLE SCLEROSIS
     Dosage: STARTING DOSE
     Route: 048
     Dates: start: 20210202, end: 20210216
  3. TECFIDERA [Suspect]
     Active Substance: DIMETHYL FUMARATE
     Dosage: MAINTENANCE DOSE
     Route: 048
     Dates: start: 20210216
  4. TECFIDERA [Suspect]
     Active Substance: DIMETHYL FUMARATE
     Route: 048
     Dates: end: 20210323

REACTIONS (5)
  - Drug ineffective [Not Recovered/Not Resolved]
  - Flushing [Unknown]
  - Multiple sclerosis relapse [Not Recovered/Not Resolved]
  - Infection susceptibility increased [Unknown]
  - Alopecia [Unknown]

NARRATIVE: CASE EVENT DATE: 20210227
